FAERS Safety Report 10003539 (Version 2)
Quarter: 2014Q2

REPORT INFORMATION
  Report Type: Spontaneous
  Country: US (occurrence: US)
  Receive Date: 20140312
  Receipt Date: 20140507
  Transmission Date: 20141212
  Serious: Yes (Hospitalization)
  Sender: FDA-Public Use
  Company Number: US-INCYTE CORPORATION-2014IN000056

PATIENT
  Age: 71 Year
  Sex: Male
  Weight: 87.08 kg

DRUGS (5)
  1. JAKAFI [Suspect]
     Indication: MYELOFIBROSIS
     Dosage: 20 MG, BID
     Route: 048
     Dates: start: 20130920
  2. LISINOPRIL [Concomitant]
  3. JANUVIA [Concomitant]
  4. GLYBURIDE [Concomitant]
  5. VITAMIN D                          /00107901/ [Concomitant]

REACTIONS (3)
  - Pulmonary embolism [Recovered/Resolved]
  - Anaemia [Recovered/Resolved]
  - Haemoglobin decreased [Unknown]
